FAERS Safety Report 18709131 (Version 3)
Quarter: 2024Q2

REPORT INFORMATION
  Report Type: Spontaneous
  Country: US (occurrence: US)
  Receive Date: 20210106
  Receipt Date: 20240516
  Transmission Date: 20240716
  Serious: No
  Sender: FDA-Public Use
  Company Number: US-BAUSCH-BL-2020-036646

PATIENT
  Age: 89 Year
  Sex: Female

DRUGS (4)
  1. UCERIS [Suspect]
     Active Substance: BUDESONIDE
     Indication: Diarrhoea
     Route: 065
  2. UCERIS [Suspect]
     Active Substance: BUDESONIDE
     Indication: Colitis
  3. BUDESONIDE [Suspect]
     Active Substance: BUDESONIDE
     Indication: Colitis
     Route: 065
  4. BUDESONIDE [Suspect]
     Active Substance: BUDESONIDE
     Indication: Diarrhoea

REACTIONS (4)
  - Therapeutic product effect incomplete [Unknown]
  - Inability to afford medication [Unknown]
  - Product substitution issue [Unknown]
  - Insurance issue [Unknown]
